FAERS Safety Report 9560056 (Version 1)
Quarter: 2013Q3

REPORT INFORMATION
  Report Type: Spontaneous
  Country: US (occurrence: None)
  Receive Date: 20130909
  Receipt Date: 20130909
  Transmission Date: 20140515
  Serious: Yes (Other)
  Sender: FDA-Public Use
  Company Number: 380991

PATIENT
  Sex: Male

DRUGS (8)
  1. VICTOZA (LIRAGLUTIDE) SOLUTION FOR INJECTION, 6MG/ML [Suspect]
     Indication: TYPE 2 DIABETES MELLITUS
     Dosage: 1,2 MG, QD, SUBCUTANEOUS
     Route: 058
     Dates: start: 201209, end: 201211
  2. ASPIRIN (ACETYLSALICYLIC ACID) [Concomitant]
  3. ZYFRTEC (CETIRIZINE HYDROCHLORIDE) [Concomitant]
  4. ADVAIR (FLUTICASONE PROPIONATE, SALMETEROL XINAFOATE) [Concomitant]
  5. OMEPRAZOLE (OMEPRAZOLE) [Concomitant]
  6. CRESTOR (ROSUVASTATIN CALCIUM) [Concomitant]
  7. LISINOPRIL HCTZ (HYDROCHLRORTHIAZIDE, LISINOPRIL) [Concomitant]
  8. LORAZEPAM (LORAZEPAM) [Concomitant]

REACTIONS (1)
  - Pancreatitis [None]
